FAERS Safety Report 17660561 (Version 3)
Quarter: 2020Q2

REPORT INFORMATION
  Report Type: Spontaneous
  Country: US (occurrence: US)
  Receive Date: 20200413
  Receipt Date: 20200521
  Transmission Date: 20200713
  Serious: Yes (Hospitalization, Other)
  Sender: FDA-Public Use
  Company Number: US-PFIZER INC-2020078309

PATIENT
  Age: 82 Year
  Sex: Female

DRUGS (10)
  1. DILANTIN [Suspect]
     Active Substance: PHENYTOIN
     Dosage: UNK
  2. LEVOTHYROXINE. [Concomitant]
     Active Substance: LEVOTHYROXINE
     Dosage: 125 UG, DAILY
  3. DILANTIN [Suspect]
     Active Substance: PHENYTOIN
     Dosage: 100 MG, 2X/DAY
     Route: 048
  4. DUONEB [Concomitant]
     Active Substance: ALBUTEROL SULFATE\IPRATROPIUM BROMIDE
     Dosage: UNK UNK, 3X/DAY
  5. DILANTIN [Suspect]
     Active Substance: PHENYTOIN
     Dosage: 500 MG, 2X/DAY
  6. PREDNISONE. [Concomitant]
     Active Substance: PREDNISONE
     Dosage: 20 MG, DAILY (FOR 5 DAYS)
  7. PREDNISONE. [Concomitant]
     Active Substance: PREDNISONE
     Dosage: 10 MG, DAILY (FOR 5 DAYS)
  8. OMNICEF [Concomitant]
     Active Substance: CEFDINIR
     Dosage: 300 MG, 2X/DAY, (FOR 5 DAYS)
  9. DILANTIN [Suspect]
     Active Substance: PHENYTOIN
     Indication: SEIZURE
     Dosage: 2 DF, DAILY
  10. COUMADIN [Concomitant]
     Active Substance: WARFARIN SODIUM
     Dosage: 3 MG, DAILY

REACTIONS (11)
  - Pneumonia [Unknown]
  - Respiratory failure [Unknown]
  - Influenza [Unknown]
  - Oxygen saturation decreased [Unknown]
  - Wrong strength [Unknown]
  - Sepsis [Unknown]
  - Hypercapnia [Unknown]
  - Chronic obstructive pulmonary disease [Unknown]
  - Overdose [Unknown]
  - Hyponatraemia [Recovered/Resolved]
  - Dependence on oxygen therapy [Unknown]
